FAERS Safety Report 7581317-9 (Version None)
Quarter: 2011Q2

REPORT INFORMATION
  Report Type: 
  Country: None (occurrence: None)
  Receive Date: 20110629
  Receipt Date: 20110614
  Transmission Date: 20111010
  Serious: Yes (Other)
  Sender: FDA-Public Use
  Company Number: FR-GENENTECH-319351

PATIENT
  Sex: Female
  Weight: 82 kg

DRUGS (5)
  1. BRICANYL [Concomitant]
     Indication: PRODUCT USED FOR UNKNOWN INDICATION
  2. PULMICORT [Concomitant]
     Indication: PRODUCT USED FOR UNKNOWN INDICATION
  3. FORADIL [Concomitant]
     Indication: PRODUCT USED FOR UNKNOWN INDICATION
  4. MONTELUKAST SODIUM [Concomitant]
     Indication: PRODUCT USED FOR UNKNOWN INDICATION
  5. XOLAIR [Suspect]
     Indication: ASTHMA
     Dosage: 225 MG, Q2W
     Route: 058
     Dates: start: 20080609

REACTIONS (4)
  - MIGRAINE [None]
  - INJECTION SITE MASS [None]
  - PAIN IN EXTREMITY [None]
  - PARALYSIS [None]
